FAERS Safety Report 10102148 (Version 1)
Quarter: 2014Q2

REPORT INFORMATION
  Report Type: Spontaneous
  Country: US (occurrence: None)
  Receive Date: 20140423
  Receipt Date: 20140423
  Transmission Date: 20141212
  Serious: Yes (Hospitalization)
  Sender: FDA-Public Use
  Company Number: None

PATIENT
  Age: 51 Year
  Sex: Male
  Weight: 59 kg

DRUGS (5)
  1. CYCLOPHOSPHAMIDE [Suspect]
     Dates: start: 20140404
  2. DOXORUBICIN HYDROCHLORIDE [Suspect]
     Dates: start: 20140403
  3. ETOPOSIDE (VP-16) [Suspect]
     Dates: start: 20140403
  4. RITUXIMAB (MOAB C2B8 ANTI CD20, CHIMERIC) [Suspect]
     Dates: start: 20140331
  5. VINCRISTINE SULFATE [Suspect]
     Dates: start: 20140403

REACTIONS (1)
  - Neutrophil count decreased [None]
